FAERS Safety Report 9552325 (Version 4)
Quarter: 2014Q1

REPORT INFORMATION
  Report Type: Spontaneous
  Country: US (occurrence: None)
  Receive Date: 20130923
  Receipt Date: 20140319
  Transmission Date: 20141002
  Serious: Yes (Other)
  Sender: FDA-Public Use
  Company Number: 2013P1019238

PATIENT
  Age: 12 Year
  Sex: Female
  Weight: 45.36 kg

DRUGS (3)
  1. ACTIMMUNE [Suspect]
     Indication: CHRONIC GRANULOMATOUS DISEASE
     Route: 058
     Dates: start: 20130713, end: 20130815
  2. BACTRIM [Concomitant]
  3. ITRACONAZOLE [Concomitant]

REACTIONS (18)
  - Pain [None]
  - Feeling hot [None]
  - Pyrexia [None]
  - Chills [None]
  - Lethargy [None]
  - Asthenia [None]
  - Throat tightness [None]
  - Oropharyngeal pain [None]
  - Crying [None]
  - Dyspnoea [None]
  - Sensation of pressure [None]
  - Neck pain [None]
  - Oropharyngeal pain [None]
  - Respiratory distress [None]
  - Drooling [None]
  - Fatigue [None]
  - Tenderness [None]
  - Malaise [None]
